FAERS Safety Report 13372110 (Version 1)
Quarter: 2017Q1

REPORT INFORMATION
  Report Type: Report from Study
  Country: CN (occurrence: CN)
  Receive Date: 20170327
  Receipt Date: 20170327
  Transmission Date: 20170429
  Serious: Yes (Death, Hospitalization, Other)
  Sender: FDA-Public Use
  Company Number: CN-ROCHE-1590442

PATIENT
  Age: 77 Year
  Sex: Male
  Weight: 56 kg

DRUGS (1)
  1. AVASTIN [Suspect]
     Active Substance: BEVACIZUMAB
     Indication: RECTAL CANCER
     Route: 041
     Dates: start: 20141117, end: 20170202

REACTIONS (9)
  - Nasopharyngitis [Unknown]
  - Asthenia [Unknown]
  - Cataract [Unknown]
  - General physical health deterioration [Unknown]
  - Pyrexia [Unknown]
  - Dyspnoea [Unknown]
  - Death [Fatal]
  - Gait disturbance [Unknown]
  - Underdose [Unknown]

NARRATIVE: CASE EVENT DATE: 20170218
